FAERS Safety Report 23083540 (Version 7)
Quarter: 2025Q2

REPORT INFORMATION
  Report Type: Spontaneous
  Country: US (occurrence: US)
  Receive Date: 20231019
  Receipt Date: 20250403
  Transmission Date: 20250717
  Serious: No
  Sender: NOVARTIS
  Company Number: US-002147023-NVSC2023US223767

PATIENT
  Sex: Male

DRUGS (1)
  1. KESIMPTA [Suspect]
     Active Substance: OFATUMUMAB
     Indication: Relapsing multiple sclerosis
     Route: 065
     Dates: start: 20230502

REACTIONS (6)
  - Feeling abnormal [Unknown]
  - Muscle tightness [Unknown]
  - Pain [Unknown]
  - Fine motor skill dysfunction [Unknown]
  - General physical condition abnormal [Unknown]
  - Upper respiratory tract infection [Unknown]
